FAERS Safety Report 13116324 (Version 1)
Quarter: 2017Q1

REPORT INFORMATION
  Report Type: Other
  Country: NL (occurrence: NL)
  Receive Date: 20170116
  Receipt Date: 20170116
  Transmission Date: 20170428
  Serious: Yes (Other)
  Sender: FDA-Public Use
  Company Number: NL-APOTEX-2017AP005755

PATIENT
  Sex: Female
  Weight: 65 kg

DRUGS (1)
  1. PAROXETINE. [Suspect]
     Active Substance: PAROXETINE
     Indication: DEPRESSION
     Dosage: 20 MG, QD
     Route: 065
     Dates: start: 2000, end: 201509

REACTIONS (3)
  - Muscle spasms [Recovering/Resolving]
  - Parkinson^s disease [Not Recovered/Not Resolved]
  - Tremor [Recovering/Resolving]

NARRATIVE: CASE EVENT DATE: 201207
